FAERS Safety Report 6249048-5 (Version None)
Quarter: 2009Q2

REPORT INFORMATION
  Report Type: 
  Country: None (occurrence: None)
  Receive Date: 20090624
  Receipt Date: 20090624
  Transmission Date: 20091009
  Serious: Yes (Hospitalization)
  Sender: FDA-Public Use
  Company Number: None

PATIENT
  Sex: Male
  Weight: 74 kg

DRUGS (1)
  1. OMNEVOL EXTREME ANABOLIC PROPRIE [Suspect]
     Indication: MUSCLE BUILDING THERAPY
     Dosage: 2 CAPSULES DAILY PO
     Route: 048
     Dates: start: 20070905, end: 20071004

REACTIONS (1)
  - JAUNDICE [None]
